FAERS Safety Report 11417191 (Version 1)
Quarter: 2015Q3

REPORT INFORMATION
  Report Type: Spontaneous
  Country: US (occurrence: US)
  Receive Date: 20150825
  Receipt Date: 20150825
  Transmission Date: 20151125
  Serious: Yes (Other)
  Sender: FDA-Public Use
  Company Number: US-UNICHEM LABORATORIES LIMITED-UCM201508-000664

PATIENT
  Age: 44 Year
  Sex: Male
  Weight: 115.67 kg

DRUGS (1)
  1. HYDROCHLOROTHIAZIDE. [Suspect]
     Active Substance: HYDROCHLOROTHIAZIDE
     Indication: HYPERTENSION
     Dates: start: 20150721

REACTIONS (8)
  - Intraocular pressure increased [Unknown]
  - Musculoskeletal discomfort [Unknown]
  - Speech disorder [Unknown]
  - Headache [Unknown]
  - Head discomfort [Unknown]
  - Rash [Unknown]
  - Blindness [Unknown]
  - Joint swelling [Unknown]

NARRATIVE: CASE EVENT DATE: 2015
